FAERS Safety Report 6648162-X (Version None)
Quarter: 2010Q1

REPORT INFORMATION
  Report Type: 
  Country: None (occurrence: None)
  Receive Date: 20100324
  Receipt Date: 20100311
  Transmission Date: 20100710
  Serious: Yes (Other)
  Sender: FDA-Public Use
  Company Number: US-ELI_LILLY_AND_COMPANY-US201003003796

PATIENT
  Sex: Female

DRUGS (13)
  1. CYMBALTA [Suspect]
     Indication: FIBROMYALGIA
     Dosage: 60 MG, DAILY (1/D)
     Dates: end: 20100308
  2. LEVOTHYROXINE SODIUM [Concomitant]
  3. METFORMIN HCL [Concomitant]
  4. JANUVIA [Concomitant]
  5. PRECOSE [Concomitant]
  6. ACYCLOVIR [Concomitant]
  7. LORAZEPAM [Concomitant]
  8. PANTOPRAZOLE [Concomitant]
  9. REQUIP [Concomitant]
  10. TORADOL [Concomitant]
  11. NALBUPHINE HYDROCHLORIDE [Concomitant]
  12. CALCIUM WITH VITAMIN D [Concomitant]
  13. VITAMIN B-12 [Concomitant]

REACTIONS (7)
  - ABDOMINAL DISCOMFORT [None]
  - ABDOMINAL PAIN UPPER [None]
  - CONSTIPATION [None]
  - DERMATITIS BULLOUS [None]
  - ERYTHEMA [None]
  - MALAISE [None]
  - PAIN OF SKIN [None]
